FAERS Safety Report 20154839 (Version 3)
Quarter: 2022Q1

REPORT INFORMATION
  Report Type: Report from Study
  Country: AT (occurrence: AT)
  Receive Date: 20211207
  Receipt Date: 20220202
  Transmission Date: 20220423
  Serious: Yes (Hospitalization)
  Sender: FDA-Public Use
  Company Number: AT-CELLTRION INC.-2021AT005332

PATIENT

DRUGS (28)
  1. TRASTUZUMAB [Suspect]
     Active Substance: TRASTUZUMAB
     Indication: HER2 positive breast cancer
     Dosage: 576 MG, EVERY 3 WEEKS (MOST RECENT DOSE PRIOR TO THE EVENT: 17/JAN/2019)
     Route: 041
     Dates: start: 20181205
  2. PERTUZUMAB [Suspect]
     Active Substance: PERTUZUMAB
     Indication: HER2 positive breast cancer
     Dosage: 840 MG, EVERY 3 WEEKS (MOST RECENT DOSE PRIOR TO THE EVENT: 27/DEC/2018)/MOST RECENT DOSE PRIOR TO C
     Route: 042
     Dates: start: 20181205, end: 20181205
  3. LETROZOLE [Suspect]
     Active Substance: LETROZOLE
     Indication: HER2 positive breast cancer
     Dosage: 2.5 MG, ONCE A DAY [MOST RECENT DOSE ON 03/APR/2019 MOST RECENT DOSE PRIOR TO INTERMITTENT INCREASE
     Route: 048
     Dates: start: 20190321
  4. ADO-TRASTUZUMAB EMTANSINE [Suspect]
     Active Substance: ADO-TRASTUZUMAB EMTANSINE
     Indication: HER2 positive breast cancer
     Dosage: 248.4 MG, EVERY 3 WEEKS
     Route: 042
     Dates: start: 20200401, end: 20200806
  5. DOCETAXEL [Suspect]
     Active Substance: DOCETAXEL
     Indication: HER2 positive breast cancer
     Dosage: 132.6 MG, EVERY 3 WEEKS (MOST RECENT DOSE PRIOR TO THE EVENT: 17/JAN/2019)/ALSO RECEIVED DOSE ON 27/
     Route: 042
     Dates: start: 20181205, end: 20181227
  6. DENOSUMAB [Suspect]
     Active Substance: DENOSUMAB
     Indication: HER2 positive breast cancer
     Dosage: 120 MG, EVERY 4 WEEKS
     Route: 058
     Dates: start: 201903
  7. DEXAMETHASONE [Concomitant]
     Active Substance: DEXAMETHASONE
     Dosage: ONGOING = CHECKED
     Dates: start: 20200401
  8. RILMENIDINE [Concomitant]
     Active Substance: RILMENIDINE
     Indication: Hypertensive crisis
     Dosage: ONGOING = CHECKED
     Dates: start: 20191123
  9. POLYETHYLENE GLYCOL 3350\POTASSIUM CHLORIDE\SODIUM BICARBONATE\SODIUM [Concomitant]
     Active Substance: POLYETHYLENE GLYCOL 3350\POTASSIUM CHLORIDE\SODIUM BICARBONATE\SODIUM CHLORIDE
     Dosage: ONGOING = CHECKED
     Dates: start: 20190106
  10. LERCANIDIPINE HYDROCHLORIDE [Concomitant]
     Active Substance: LERCANIDIPINE HYDROCHLORIDE
     Dosage: ONGOING = CHECKED
     Dates: start: 20200226
  11. GUTTALAX [Concomitant]
     Dosage: ONGOING = CHECKED
     Dates: start: 20190106
  12. CARVEDILOL [Concomitant]
     Active Substance: CARVEDILOL
     Dosage: ONGOING = CHECKED
     Dates: start: 20200210
  13. CANDESARTAN CILEXETIL\HYDROCHLOROTHIAZIDE [Concomitant]
     Active Substance: CANDESARTAN CILEXETIL\HYDROCHLOROTHIAZIDE
     Dosage: UNK
     Dates: start: 20190820, end: 20200302
  14. CANDESARTAN CILEXETIL\HYDROCHLOROTHIAZIDE [Concomitant]
     Active Substance: CANDESARTAN CILEXETIL\HYDROCHLOROTHIAZIDE
     Dosage: UNK
     Dates: start: 20200302
  15. METOCLOPRAMIDE HYDROCHLORIDE [Concomitant]
     Active Substance: METOCLOPRAMIDE HYDROCHLORIDE
     Dosage: ONGOING = CHECKED
     Dates: start: 20190117
  16. NOVALGIN (METAMIZOLE SODIUM) [Concomitant]
     Active Substance: METAMIZOLE SODIUM
     Indication: Pain in extremity
     Dosage: ONGOING = CHECKED
     Dates: start: 20190821
  17. NORVASC [Concomitant]
     Active Substance: AMLODIPINE BESYLATE
     Indication: Hypertensive crisis
     Dosage: ONGOING = CHECKED
     Dates: start: 20191123
  18. NITROLINGUAL [Concomitant]
     Active Substance: NITROGLYCERIN
     Indication: Hypertensive crisis
     Dosage: ONGOING = CHECKED
     Dates: start: 20191123
  19. ANTIFLAT [Concomitant]
     Dosage: ONGOING = CHECKED
     Dates: start: 20181227
  20. ASCORBIC ACID;CALCIUM PHOSPHATE;CITRIC ACID;COLECALCIFEROL [Concomitant]
     Dosage: ONGOING = CHECKED
     Dates: start: 20190412
  21. MEFENAMIC ACID [Concomitant]
     Active Substance: MEFENAMIC ACID
     Indication: Arthralgia
     Dosage: ONGOING = CHECKED
     Dates: start: 20190614
  22. LOVENOX [Concomitant]
     Active Substance: ENOXAPARIN SODIUM
     Indication: Pain in extremity
     Dosage: ONGOING = CHECKED
     Dates: start: 20190821
  23. KYTRIL [Concomitant]
     Active Substance: GRANISETRON HYDROCHLORIDE
     Dosage: ONGOING = CHECKED
     Dates: start: 20200401
  24. ZOVIRAX [Concomitant]
     Active Substance: ACYCLOVIR
     Indication: Oral herpes
     Dosage: UNK
     Dates: start: 20191015, end: 20191022
  25. HYDROCHLOROTHIAZIDE\OLMESARTAN MEDOXOMIL [Concomitant]
     Active Substance: HYDROCHLOROTHIAZIDE\OLMESARTAN MEDOXOMIL
     Dosage: 20/12,5MG
     Dates: start: 20190415
  26. DEXAMETHASONE [Concomitant]
     Active Substance: DEXAMETHASONE
     Dosage: UNK
     Dates: start: 20181204, end: 20200302
  27. DEXAMETHASONE [Concomitant]
     Active Substance: DEXAMETHASONE
     Dosage: ONGOING = CHECKED
     Dates: start: 20181204
  28. NEULASTA [Concomitant]
     Active Substance: PEGFILGRASTIM
     Dosage: UNK
     Dates: start: 20181204

REACTIONS (12)
  - Hypertensive crisis [Recovered/Resolved]
  - Fatigue [Recovered/Resolved]
  - Myalgia [Not Recovered/Not Resolved]
  - Constipation [Recovered/Resolved]
  - Arthralgia [Not Recovered/Not Resolved]
  - Pain in extremity [Unknown]
  - Tonsillitis [Recovered/Resolved]
  - Blood pressure increased [Recovered/Resolved]
  - Headache [Recovered/Resolved]
  - Hypertension [Recovering/Resolving]
  - Arthralgia [Not Recovered/Not Resolved]
  - Overdose [Unknown]

NARRATIVE: CASE EVENT DATE: 20190415
